FAERS Safety Report 8800816 (Version 1)
Quarter: 2012Q4

REPORT INFORMATION
  Report Type: 
  Country: NL (occurrence: NL)
  Receive Date: 20120920
  Receipt Date: 20120920
  Transmission Date: 20130627
  Serious: Yes (Other)
  Sender: FDA-Public Use
  Company Number: NL-MYLANLABS-2012S1018963

PATIENT
  Sex: Female

DRUGS (7)
  1. NITROFURANTOIN [Suspect]
     Indication: URINARY TRACT INFECTION
     Route: 065
  2. ASPIRIN [Concomitant]
     Route: 065
  3. FLUTICASONE PROPIONATE W/SALMETEROL [Concomitant]
     Route: 065
  4. IPRATROPIUM BROMIDE [Concomitant]
     Route: 065
  5. CALCIUM D3                         /01483701/ [Concomitant]
     Indication: OSTEOPOROSIS
     Dosage: 500mg/800ie
     Route: 065
  6. DIPYRIDAMOLE [Concomitant]
     Indication: CEREBROVASCULAR ACCIDENT
     Dosage: 150mg
     Route: 065
  7. SIMVASTATIN [Concomitant]
     Indication: CEREBROVASCULAR ACCIDENT
     Dosage: 40mg
     Route: 065

REACTIONS (2)
  - Vasculitis [Recovered/Resolved]
  - Dyspnoea [Recovered/Resolved]
